FAERS Safety Report 11967244 (Version 3)
Quarter: 2016Q1

REPORT INFORMATION
  Report Type: Spontaneous
  Country: US (occurrence: US)
  Receive Date: 20160127
  Receipt Date: 20160218
  Transmission Date: 20160526
  Serious: Yes (Hospitalization, Other)
  Sender: FDA-Public Use
  Company Number: US-UNITED THERAPEUTICS-UNT-2016-001000

PATIENT
  Age: 46 Year
  Sex: Female
  Weight: 59.5 kg

DRUGS (1)
  1. REMODULIN [Suspect]
     Active Substance: TREPROSTINIL
     Indication: PULMONARY ARTERIAL HYPERTENSION
     Dosage: 0.085 ?G/KG, CONTINUING
     Route: 041
     Dates: start: 20151023

REACTIONS (3)
  - Malaise [Unknown]
  - Ascites [Unknown]
  - Therapy cessation [Unknown]

NARRATIVE: CASE EVENT DATE: 201601
